FAERS Safety Report 20328086 (Version 4)
Quarter: 2022Q1

REPORT INFORMATION
  Report Type: Spontaneous
  Country: DE (occurrence: DE)
  Receive Date: 20220112
  Receipt Date: 20220315
  Transmission Date: 20220423
  Serious: Yes (Other)
  Sender: FDA-Public Use
  Company Number: DE-009507513-2112DEU009387

PATIENT
  Age: 28 Year
  Sex: Female
  Weight: 95 kg

DRUGS (10)
  1. CASPOFUNGIN [Suspect]
     Active Substance: CASPOFUNGIN
     Indication: Candida sepsis
     Dosage: 70 MILLIGRAM, QD
     Dates: start: 20200727, end: 20200811
  2. PIPERACILLIN SODIUM\TAZOBACTAM SODIUM [Suspect]
     Active Substance: PIPERACILLIN SODIUM\TAZOBACTAM SODIUM
     Indication: Candida sepsis
     Dosage: UNK
     Dates: start: 20200805, end: 20200811
  3. PIPERACILLIN SODIUM\TAZOBACTAM SODIUM [Suspect]
     Active Substance: PIPERACILLIN SODIUM\TAZOBACTAM SODIUM
     Indication: Antibiotic therapy
     Dosage: UNK
     Dates: start: 20200720, end: 20200822
  4. MEROPENEM [Suspect]
     Active Substance: MEROPENEM
     Indication: Candida sepsis
     Dosage: 2 GRAM, TOTAL, (2 GRAM, ONCE)
     Dates: start: 20200722, end: 20200722
  5. MEROPENEM [Suspect]
     Active Substance: MEROPENEM
     Dosage: 6 GRAM, QD, 2 GRAM, TID
     Dates: start: 20200723, end: 20200801
  6. FLUCLOXACILLIN SODIUM [Suspect]
     Active Substance: FLUCLOXACILLIN SODIUM
     Indication: Candida sepsis
     Dosage: 12 GRAM, QD
     Dates: start: 20200803, end: 20200811
  7. FLUCONAZOLE [Suspect]
     Active Substance: FLUCONAZOLE
     Indication: Candida sepsis
     Dosage: UNK
  8. FLUCONAZOLE [Suspect]
     Active Substance: FLUCONAZOLE
     Indication: Fungal skin infection
     Dosage: UNK
     Dates: start: 20200720, end: 20200726
  9. NOREPINEPHRINE [Concomitant]
     Active Substance: NOREPINEPHRINE
     Indication: Life support
     Dosage: 0.25 MICROGRAM PER KILOGRAM AND MINUTE
     Dates: start: 20200720
  10. INSULIN NOS [Concomitant]
     Active Substance: INSULIN NOS
     Indication: Type 1 diabetes mellitus
     Dosage: UNK
     Dates: start: 20200720

REACTIONS (2)
  - Drug ineffective [Unknown]
  - Candida sepsis [Not Recovered/Not Resolved]

NARRATIVE: CASE EVENT DATE: 20200727
